FAERS Safety Report 5786230-5 (Version None)
Quarter: 2008Q2

REPORT INFORMATION
  Report Type: 
  Country: None (occurrence: None)
  Receive Date: 20080618
  Receipt Date: 20080609
  Transmission Date: 20081010
  Serious: Yes (Hospitalization)
  Sender: FDA-Public Use
  Company Number: 2008015383

PATIENT
  Age: 3 Year
  Sex: Male

DRUGS (1)
  1. CETIRIZINE HCL [Suspect]
     Indication: SEASONAL ALLERGY
     Dates: start: 20080101

REACTIONS (3)
  - EXTRAPYRAMIDAL DISORDER [None]
  - HYPERTENSION [None]
  - OPISTHOTONUS [None]
